FAERS Safety Report 8564641-2 (Version None)
Quarter: 2012Q3

REPORT INFORMATION
  Report Type: 
  Country: None (occurrence: None)
  Receive Date: 20120803
  Receipt Date: 20120726
  Transmission Date: 20120928
  Serious: No
  Sender: FDA-Public Use
  Company Number: US-B.I. PHARMACEUTICALS,INC./RIDGEFIELD-2012-BP-17034BP

PATIENT
  Age: 84 Year
  Sex: Female
  Weight: 64 kg

DRUGS (8)
  1. AMLODIPINE [Concomitant]
     Indication: BLOOD PRESSURE ABNORMAL
     Dosage: 5 MG
     Route: 048
     Dates: start: 20070101
  2. LORAZEPAM [Concomitant]
     Indication: PANIC ATTACK
     Dosage: 0.2 MG
     Route: 048
     Dates: start: 19920101
  3. CLONIDINE [Concomitant]
     Indication: BLOOD PRESSURE ABNORMAL
     Dosage: 0.1 MG
     Route: 048
     Dates: start: 20070101
  4. FUROSEMIDE [Concomitant]
     Indication: BLOOD PRESSURE ABNORMAL
     Dosage: 1728000 MG
     Route: 048
     Dates: start: 20070101
  5. LABETALOL HCL [Concomitant]
     Indication: BLOOD PRESSURE ABNORMAL
     Dosage: 400 MG
     Route: 048
     Dates: start: 20070101
  6. DIOVAN [Concomitant]
     Indication: BLOOD PRESSURE ABNORMAL
     Dosage: 320 MG
     Route: 048
     Dates: start: 20070101
  7. SPIRIVA [Suspect]
     Indication: CHRONIC OBSTRUCTIVE PULMONARY DISEASE
     Dosage: 18 MCG
     Route: 055
     Dates: start: 20110101
  8. SPIRIVA [Suspect]
     Route: 048
     Dates: start: 20120726, end: 20120726

REACTIONS (1)
  - INCORRECT ROUTE OF DRUG ADMINISTRATION [None]
